FAERS Safety Report 10570133 (Version 2)
Quarter: 2014Q4

REPORT INFORMATION
  Report Type: Spontaneous
  Country: US (occurrence: None)
  Receive Date: 20141105
  Receipt Date: 20141205
  Transmission Date: 20150529
  Serious: Yes (Hospitalization, Other)
  Sender: FDA-Public Use
  Company Number: RAP-0029-2014

PATIENT
  Age: 16 Year
  Sex: Male
  Weight: 53.9 kg

DRUGS (1)
  1. PROCYSBI DELAYED-RELEASE [Suspect]
     Active Substance: CYSTEAMINE BITARTRATE
     Indication: CYSTINOSIS
     Dosage: 1800 MG
     Route: 048
     Dates: start: 201408, end: 20141008

REACTIONS (3)
  - Vomiting [None]
  - Renal failure [None]
  - Nausea [None]

NARRATIVE: CASE EVENT DATE: 201408
